FAERS Safety Report 10767491 (Version 1)
Quarter: 2015Q1

REPORT INFORMATION
  Report Type: Spontaneous
  Country: US (occurrence: US)
  Receive Date: 20150205
  Receipt Date: 20150205
  Transmission Date: 20150721
  Serious: Yes (Other)
  Sender: FDA-Public Use
  Company Number: US-TEVA-537704USA

PATIENT
  Age: 36 Year
  Sex: Female

DRUGS (1)
  1. COPAXONE [Suspect]
     Active Substance: GLATIRAMER ACETATE
     Indication: MULTIPLE SCLEROSIS
     Dates: start: 20150109

REACTIONS (8)
  - Multiple sclerosis relapse [Unknown]
  - Paraesthesia [Unknown]
  - Migraine [Unknown]
  - Vision blurred [Unknown]
  - Fall [Unknown]
  - Motor dysfunction [Unknown]
  - Hypoaesthesia [Unknown]
  - Limb discomfort [Unknown]

NARRATIVE: CASE EVENT DATE: 201501
